FAERS Safety Report 8831131 (Version 1)
Quarter: 2012Q4

REPORT INFORMATION
  Report Type: Spontaneous
  Country: US (occurrence: None)
  Receive Date: 20121005
  Receipt Date: 20121005
  Transmission Date: 20130627
  Serious: No
  Sender: FDA-Public Use
  Company Number: None

PATIENT
  Age: 28 Year
  Sex: Male

DRUGS (1)
  1. CITALOPRAM [Suspect]
     Indication: MAJOR DEPRESSION
     Dosage: Citalopram, 40 mg, daily, PO 
Past 1-2 months
     Route: 048

REACTIONS (2)
  - Headache [None]
  - Sedation [None]
